FAERS Safety Report 13735068 (Version 1)
Quarter: 2017Q3

REPORT INFORMATION
  Report Type: Spontaneous
  Country: US (occurrence: US)
  Receive Date: 20170710
  Receipt Date: 20170710
  Transmission Date: 20171127
  Serious: No
  Sender: FDA-Public Use
  Company Number: US-THE MEDICINES COMPANY-US-MDCO-17-00064

PATIENT
  Sex: Female

DRUGS (3)
  1. IONSYS [Suspect]
     Active Substance: FENTANYL HYDROCHLORIDE
     Indication: PROCEDURAL PAIN
     Dosage: NOT REPORTED
     Dates: start: 201702, end: 201702
  2. IONSYS [Suspect]
     Active Substance: FENTANYL HYDROCHLORIDE
     Dosage: NOT REPORTED
     Dates: start: 201702, end: 201702
  3. IONSYS [Suspect]
     Active Substance: FENTANYL HYDROCHLORIDE
     Dosage: NOT REPORTED
     Dates: start: 201702, end: 201702

REACTIONS (4)
  - Application site pruritus [Recovering/Resolving]
  - Application site burn [Recovering/Resolving]
  - Application site erythema [Recovering/Resolving]
  - Application site vesicles [Recovering/Resolving]

NARRATIVE: CASE EVENT DATE: 201702
